FAERS Safety Report 4875781-3 (Version None)
Quarter: 2006Q1

REPORT INFORMATION
  Report Type: 
  Country: None (occurrence: None)
  Receive Date: 20060104
  Receipt Date: 20051227
  Transmission Date: 20060701
  Serious: Yes (Hospitalization)
  Sender: FDA-Public Use
  Company Number: RENA-11641

PATIENT
  Age: 55 Year
  Sex: Female

DRUGS (12)
  1. RENAGEL [Suspect]
     Indication: HYPERPHOSPHATAEMIA
     Dosage: 1.75 G TID PO
     Route: 048
     Dates: start: 20031130, end: 20051128
  2. ALLOPURINOL [Concomitant]
  3. D-SORBITOL (SORBITOL) [Concomitant]
  4. PURSENNID [Concomitant]
  5. HICEE [Concomitant]
  6. MARZULENE S [Concomitant]
  7. HALCION [Concomitant]
  8. LANDSEN [Concomitant]
  9. BLOPRESS [Concomitant]
  10. CALSLOT [Concomitant]
  11. INSIDE [Concomitant]
  12. CYANOCOBALAMIN [Concomitant]

REACTIONS (1)
  - DUODENAL ULCER HAEMORRHAGE [None]
